FAERS Safety Report 7389578-6 (Version None)
Quarter: 2011Q2

REPORT INFORMATION
  Report Type: 
  Country: None (occurrence: None)
  Receive Date: 20110401
  Receipt Date: 20110328
  Transmission Date: 20111010
  Serious: Yes (Death, Other)
  Sender: FDA-Public Use
  Company Number: PHHY2011ZA25437

PATIENT
  Sex: Male

DRUGS (4)
  1. TASIGNA [Suspect]
     Dosage: 400 MG, UNK
     Dates: start: 20110311
  2. TASIGNA [Suspect]
     Dosage: 400 MG, UNK
     Dates: start: 20110317
  3. TASIGNA [Suspect]
     Dosage: 400 MG, UNK
     Dates: start: 20110322
  4. TASIGNA [Suspect]
     Dosage: 400 MG, UNK

REACTIONS (5)
  - OVERWEIGHT [None]
  - BLAST CELL CRISIS [None]
  - HEADACHE [None]
  - CEREBROVASCULAR DISORDER [None]
  - RASH PRURITIC [None]
